FAERS Safety Report 4632409-5 (Version None)
Quarter: 2005Q2

REPORT INFORMATION
  Report Type: 
  Country: None (occurrence: None)
  Receive Date: 20050411
  Receipt Date: 20050310
  Transmission Date: 20051028
  Serious: Yes (Other)
  Sender: FDA-Public Use
  Company Number: US-GLAXOSMITHKLINE-A0549187A

PATIENT
  Age: 57 Year
  Sex: Male
  Weight: 86.4 kg

DRUGS (6)
  1. NICODERM CQ [Suspect]
     Indication: SMOKING CESSATION THERAPY
     Route: 062
     Dates: start: 20050101, end: 20050310
  2. NORVASC [Concomitant]
     Indication: HYPERTENSION
     Dosage: 5MG PER DAY
     Route: 048
  3. LISINOPRIL AND HYDROCHLOROTHIAZIDE [Concomitant]
     Indication: ILL-DEFINED DISORDER
     Route: 048
  4. AMBIEN [Concomitant]
     Indication: SLEEP DISORDER THERAPY
     Route: 048
  5. PROPOXYPHENE HCL [Concomitant]
     Indication: ANALGESIC EFFECT
     Dosage: 100MG AS REQUIRED
     Route: 048
  6. NICORETTE [Concomitant]
     Indication: NICOTINE DEPENDENCE
     Dosage: 2MG PER DAY
     Route: 002

REACTIONS (5)
  - ABNORMAL DREAMS [None]
  - CLAUSTROPHOBIA [None]
  - DYSPNOEA [None]
  - PALPITATIONS [None]
  - SUICIDAL IDEATION [None]
